FAERS Safety Report 5542927-3 (Version None)
Quarter: 2007Q4

REPORT INFORMATION
  Report Type: 
  Country: None (occurrence: None)
  Receive Date: 20071210
  Receipt Date: 20071130
  Transmission Date: 20080405
  Serious: Yes (Hospitalization, Other)
  Sender: FDA-Public Use
  Company Number: HR-ABBOTT-07P-216-0415914-00

PATIENT
  Age: 62 Year
  Sex: Female

DRUGS (9)
  1. CYCLOSPORINE [Suspect]
     Indication: LIVER TRANSPLANT
  2. CYCLOSPORINE [Suspect]
  3. CYCLOSPORINE [Suspect]
  4. METHYLPREDNISOLONE [Concomitant]
     Indication: LIVER TRANSPLANT
     Dosage: 3 X 1 GRAM BOLUS
  5. PREDNISOLONE [Concomitant]
     Indication: LIVER TRANSPLANT
  6. AZATHIOPRINE [Concomitant]
     Indication: LIVER TRANSPLANT
  7. UNKNOWN DIURETIC [Concomitant]
     Indication: LIVER TRANSPLANT
     Dosage: NOT REPORTED
  8. POTASSIUM SUBSTITUTION [Concomitant]
     Indication: LIVER TRANSPLANT
     Dosage: NOT REPORTED
  9. UNKNOWN MEDICATION [Concomitant]
     Indication: PROPHYLAXIS AGAINST GASTROINTESTINAL ULCER
     Dosage: NOT REPORTED

REACTIONS (1)
  - MAJOR DEPRESSION [None]
